APPROVED DRUG PRODUCT: TYZEKA
Active Ingredient: TELBIVUDINE
Strength: 100MG/5ML
Dosage Form/Route: SOLUTION;ORAL
Application: N022154 | Product #001
Applicant: NOVARTIS PHARMACEUTICALS CORP
Approved: Apr 28, 2009 | RLD: No | RS: No | Type: DISCN